FAERS Safety Report 8562044 (Version 2)
Quarter: 2013Q4

REPORT INFORMATION
  Report Type: Spontaneous
  Country: JP (occurrence: JP)
  Receive Date: 20120515
  Receipt Date: 20131028
  Transmission Date: 20140711
  Serious: Yes (Disabling, Other)
  Sender: FDA-Public Use
  Company Number: JP-ASTELLAS-2012JP004092

PATIENT
  Age: 40 Year
  Sex: Female

DRUGS (1)
  1. PROGRAF [Suspect]
     Indication: IMMUNOSUPPRESSANT DRUG THERAPY
     Route: 050

REACTIONS (3)
  - Drug prescribing error [Unknown]
  - Posterior reversible encephalopathy syndrome [Unknown]
  - Cerebral infarction [Not Recovered/Not Resolved]
